FAERS Safety Report 5234756-5 (Version None)
Quarter: 2007Q1

REPORT INFORMATION
  Report Type: 
  Country: None (occurrence: None)
  Receive Date: 20070209
  Receipt Date: 20070130
  Transmission Date: 20070707
  Serious: Yes (Death)
  Sender: FDA-Public Use
  Company Number: US-ELI_LILLY_AND_COMPANY-US200701006122

PATIENT
  Age: 57 Year
  Sex: Male

DRUGS (2)
  1. GEMZAR [Suspect]
     Indication: SARCOMA
     Dates: start: 20061106
  2. TAXOTERE [Concomitant]
     Indication: SARCOMA

REACTIONS (1)
  - DEATH [None]
